FAERS Safety Report 9606343 (Version 2)
Quarter: 2013Q4

REPORT INFORMATION
  Report Type: Spontaneous
  Country: US (occurrence: US)
  Receive Date: 20131008
  Receipt Date: 20131008
  Transmission Date: 20140711
  Serious: No
  Sender: FDA-Public Use
  Company Number: US-AMGEN-USASP2013049780

PATIENT
  Age: 60 Year
  Sex: Female
  Weight: 56.69 kg

DRUGS (2)
  1. PROLIA [Suspect]
     Indication: OSTEOPOROSIS POSTMENOPAUSAL
     Dosage: 60 MG, TWICE A YEAR
     Route: 058
     Dates: start: 20120221, end: 201208
  2. PROLIA [Suspect]
     Route: 058

REACTIONS (4)
  - Skin reaction [Unknown]
  - Blister [Unknown]
  - Pruritus [Unknown]
  - Rash [Unknown]
